FAERS Safety Report 6491513-X (Version None)
Quarter: 2009Q4

REPORT INFORMATION
  Report Type: 
  Country: None (occurrence: None)
  Receive Date: 20091211
  Receipt Date: 20091203
  Transmission Date: 20100525
  Serious: Yes (Other)
  Sender: FDA-Public Use
  Company Number: PL-GENENTECH-295035

PATIENT
  Age: 30 Year
  Sex: Male

DRUGS (5)
  1. MABTHERA [Suspect]
     Indication: PRIMARY MEDIASTINAL LARGE B-CELL LYMPHOMA
     Dosage: UNK
     Route: 065
     Dates: start: 20070401
  2. CYCLOPHOSPHAMIDE [Suspect]
     Indication: PRIMARY MEDIASTINAL LARGE B-CELL LYMPHOMA
     Dosage: UNK
     Route: 065
     Dates: start: 20070401
  3. HYDROXYDAUNORUBICIN [Suspect]
     Indication: PRIMARY MEDIASTINAL LARGE B-CELL LYMPHOMA
     Dosage: UNK
     Route: 065
     Dates: start: 20070401
  4. VINCRISTINE [Suspect]
     Indication: PRIMARY MEDIASTINAL LARGE B-CELL LYMPHOMA
     Dosage: UNK
     Route: 065
     Dates: start: 20070401
  5. PREDNISONE [Suspect]
     Indication: PRIMARY MEDIASTINAL LARGE B-CELL LYMPHOMA
     Dosage: UNK
     Route: 065
     Dates: start: 20070401

REACTIONS (5)
  - AGRANULOCYTOSIS [None]
  - FEBRILE NEUTROPENIA [None]
  - FUNGAL INFECTION [None]
  - LEUKOPENIA [None]
  - ODYNOPHAGIA [None]
